FAERS Safety Report 22633878 (Version 1)
Quarter: 2023Q2

REPORT INFORMATION
  Report Type: Spontaneous
  Country: TR (occurrence: TR)
  Receive Date: 20230623
  Receipt Date: 20230623
  Transmission Date: 20230722
  Serious: Yes (Other)
  Sender: FDA-Public Use
  Company Number: TR-JNJFOC-20230621375

PATIENT
  Age: 37 Year
  Sex: Male
  Weight: 73 kg

DRUGS (1)
  1. RISPERDAL [Suspect]
     Active Substance: RISPERIDONE
     Indication: Product used for unknown indication
     Dosage: IN THE EVENING IN PILL FORM USED FOR 7 YEARS
     Route: 048

REACTIONS (7)
  - Hallucination, visual [Recovering/Resolving]
  - Erectile dysfunction [Unknown]
  - Somnolence [Unknown]
  - Semen discolouration [Recovering/Resolving]
  - Hypersomnia [Unknown]
  - Breast enlargement [Unknown]
  - Gait inability [Unknown]
